FAERS Safety Report 16814813 (Version 1)
Quarter: 2019Q3

REPORT INFORMATION
  Report Type: Spontaneous
  Country: US (occurrence: US)
  Receive Date: 20190917
  Receipt Date: 20190917
  Transmission Date: 20191005
  Serious: No
  Sender: FDA-Public Use
  Company Number: US-ALLERGAN-1850873US

PATIENT
  Sex: Male

DRUGS (5)
  1. COLACE [Concomitant]
     Active Substance: DOCUSATE SODIUM
     Indication: CONSTIPATION
     Dosage: UNK
     Dates: end: 20181025
  2. LINZESS [Suspect]
     Active Substance: LINACLOTIDE
     Indication: CONSTIPATION
     Dosage: 72 ?G, UNK
     Route: 048
     Dates: start: 20181024
  3. LIPITOR [Concomitant]
     Active Substance: ATORVASTATIN CALCIUM
     Indication: BLOOD CHOLESTEROL INCREASED
     Dosage: UNK
  4. ELIQUIS [Concomitant]
     Active Substance: APIXABAN
     Indication: CARDIAC DISORDER
     Dosage: UNK
  5. MUCINEX [Concomitant]
     Active Substance: GUAIFENESIN
     Dosage: UNK

REACTIONS (1)
  - Diarrhoea [Not Recovered/Not Resolved]

NARRATIVE: CASE EVENT DATE: 20181024
